FAERS Safety Report 21561388 (Version 1)
Quarter: 2022Q4

REPORT INFORMATION
  Report Type: Spontaneous
  Country: FR (occurrence: FR)
  Receive Date: 20221107
  Receipt Date: 20221107
  Transmission Date: 20230113
  Serious: Yes (Life-Threatening, Other)
  Sender: FDA-Public Use
  Company Number: FR-DENTSPLY-2022SCDP000318

PATIENT
  Age: 80 Year
  Sex: Female
  Weight: 70 kg

DRUGS (1)
  1. MEPIVACAINE [Suspect]
     Active Substance: MEPIVACAINE HYDROCHLORIDE
     Indication: Local anaesthesia
     Dosage: 350 MILLIGRAM MEPIVACAINE B BRAUN
     Route: 053
     Dates: start: 20220901

REACTIONS (1)
  - Cardiac arrest [Recovered/Resolved]

NARRATIVE: CASE EVENT DATE: 20220901
